FAERS Safety Report 21146431 (Version 1)
Quarter: 2022Q3

REPORT INFORMATION
  Report Type: Spontaneous
  Country: US (occurrence: US)
  Receive Date: 20220729
  Receipt Date: 20220729
  Transmission Date: 20221027
  Serious: Yes (Life-Threatening, Hospitalization)
  Sender: FDA-Public Use
  Company Number: US-drreddys-LIT/USA/22/0152744

PATIENT
  Age: 60 Year
  Sex: Male

DRUGS (12)
  1. LEVETIRACETAM [Suspect]
     Active Substance: LEVETIRACETAM
     Indication: Partial seizures
  2. LAMOTRIGINE [Suspect]
     Active Substance: LAMOTRIGINE
     Indication: Partial seizures
  3. VALPROIC ACID [Suspect]
     Active Substance: VALPROIC ACID
     Indication: Partial seizures
  4. CLONAZEPAM [Suspect]
     Active Substance: CLONAZEPAM
     Indication: Partial seizures
  5. LACOSAMIDE [Suspect]
     Active Substance: LACOSAMIDE
     Indication: Partial seizures
  6. LACOSAMIDE [Suspect]
     Active Substance: LACOSAMIDE
     Dosage: REDUCED LACOSAMIDE DOSE.
  7. PERAMPANEL [Concomitant]
     Active Substance: PERAMPANEL
     Indication: Partial seizures
  8. PERAMPANEL [Concomitant]
     Active Substance: PERAMPANEL
     Dosage: DOSE WAS REDUCED TO 12MG PER NIGHT
  9. PERAMPANEL [Concomitant]
     Active Substance: PERAMPANEL
     Dosage: DOSE WAS REDUCED
  10. TIAGABINE [Concomitant]
     Active Substance: TIAGABINE
     Indication: Partial seizures
  11. TIAGABINE [Concomitant]
     Active Substance: TIAGABINE
     Dosage: WAS TITRATED TO
  12. TIAGABINE [Concomitant]
     Active Substance: TIAGABINE
     Dosage: WAS DECREASED BY ONLY HALF TABLET WITHOUT FURTHER OCCURRENCES FOR TWO MONTHS

REACTIONS (1)
  - Drug ineffective [Unknown]
